FAERS Safety Report 8259883-X (Version None)
Quarter: 2012Q2

REPORT INFORMATION
  Report Type: 
  Country: None (occurrence: None)
  Receive Date: 20120404
  Receipt Date: 20120328
  Transmission Date: 20120825
  Serious: Yes (Hospitalization, Other)
  Sender: FDA-Public Use
  Company Number: FR-GLAXOSMITHKLINE-B0784064A

PATIENT
  Sex: Male
  Weight: 14 kg

DRUGS (1)
  1. CEFUROXIME [Suspect]
     Indication: EAR INFECTION
     Route: 048
     Dates: start: 20120210, end: 20120216

REACTIONS (7)
  - STATUS EPILEPTICUS [None]
  - BALANCE DISORDER [None]
  - CONVULSION [None]
  - HEMIPARESIS [None]
  - PRODUCT QUALITY ISSUE [None]
  - SOMNOLENCE [None]
  - CONFUSIONAL STATE [None]
